FAERS Safety Report 6714972-3 (Version None)
Quarter: 2010Q2

REPORT INFORMATION
  Report Type: 
  Country: None (occurrence: None)
  Receive Date: 20100507
  Receipt Date: 20100427
  Transmission Date: 20101027
  Serious: Yes (Other)
  Sender: FDA-Public Use
  Company Number: US-JNJFOC-20100501088

PATIENT
  Age: 4 Year
  Sex: Male

DRUGS (2)
  1. CLDRIBINE [Suspect]
     Indication: ACUTE MYELOID LEUKAEMIA
     Dosage: GIVEN INTRAVENOUSLY OVER 3 HOURS
     Route: 042
  2. TOPOTECAN [Suspect]
     Indication: ACUTE MYELOID LEUKAEMIA
     Dosage: GIVEN INTRAVENOUSLY OVER  30 MINUTES, STARTING 8 HOURS AFTER INITIATION OF CLADRIBINE
     Route: 042

REACTIONS (5)
  - ASPERGILLOSIS [None]
  - DRUG EFFECT DECREASED [None]
  - FEBRILE NEUTROPENIA [None]
  - INCORRECT DOSE ADMINISTERED [None]
  - VENOOCCLUSIVE LIVER DISEASE [None]
